FAERS Safety Report 10971714 (Version 3)
Quarter: 2015Q2

REPORT INFORMATION
  Report Type: Spontaneous
  Country: JP (occurrence: JP)
  Receive Date: 20150331
  Receipt Date: 20150422
  Transmission Date: 20150821
  Serious: Yes (Other)
  Sender: FDA-Public Use
  Company Number: JP-BAYER-2015-075997

PATIENT
  Age: 72 Year
  Sex: Male
  Weight: 63 kg

DRUGS (9)
  1. WARFARIN [Interacting]
     Active Substance: WARFARIN
     Indication: ATRIAL THROMBOSIS
     Dosage: 2.5 MG, UNK
  2. CANDESARTAN [Concomitant]
     Active Substance: CANDESARTAN
     Indication: CARDIAC FAILURE
     Dosage: 4 MG, UNK
  3. WARFARIN [Interacting]
     Active Substance: WARFARIN
     Indication: ATRIAL THROMBOSIS
     Dosage: 3.0 UNK, UNK
  4. RIVAROXABAN [Interacting]
     Active Substance: RIVAROXABAN
     Indication: ATRIAL THROMBOSIS
     Dosage: 15 MG, QD
     Route: 048
  5. BAYASPIRIN [Suspect]
     Active Substance: ASPIRIN
     Dosage: DAILY DOSE 100 MG
     Route: 048
  6. WARFARIN [Interacting]
     Active Substance: WARFARIN
     Indication: ATRIAL THROMBOSIS
     Dosage: 2.5 MG, UNK
  7. BISOPROLOL [Concomitant]
     Active Substance: BISOPROLOL
     Indication: CARDIAC FAILURE
     Dosage: 2.5 MG, UNK
  8. CLOPIDOGREL [Suspect]
     Active Substance: CLOPIDOGREL BISULFATE
     Indication: ANTIPLATELET THERAPY
     Dosage: 75 MG, UNK
  9. FUROSEMIDE. [Concomitant]
     Active Substance: FUROSEMIDE
     Indication: CARDIAC FAILURE
     Dosage: 20 MG, UNK

REACTIONS (3)
  - Metastases to trachea [None]
  - Haemoptysis [Recovered/Resolved]
  - Colon cancer stage IV [None]
